FAERS Safety Report 20232333 (Version 1)
Quarter: 2021Q4

REPORT INFORMATION
  Report Type: Report from Study
  Country: US (occurrence: US)
  Receive Date: 20211227
  Receipt Date: 20211227
  Transmission Date: 20220303
  Serious: Yes (Other)
  Sender: FDA-Public Use
  Company Number: US-SANOFI-00696291

PATIENT
  Age: 74 Year
  Sex: Male

DRUGS (2)
  1. DUPILUMAB [Suspect]
     Active Substance: DUPILUMAB
     Indication: Nasal polyps
     Dosage: 300 MG, QOW
     Route: 058
     Dates: start: 20210709
  2. COUMADIN [Concomitant]
     Active Substance: WARFARIN SODIUM
     Indication: Blood disorder

REACTIONS (6)
  - Lung carcinoma cell type unspecified recurrent [Unknown]
  - Injection site swelling [Not Recovered/Not Resolved]
  - Injection site erythema [Not Recovered/Not Resolved]
  - Device difficult to use [Not Recovered/Not Resolved]
  - Visual impairment [Unknown]
  - Aneurysm [Unknown]

NARRATIVE: CASE EVENT DATE: 20210101
